FAERS Safety Report 6982523-4 (Version None)
Quarter: 2010Q3

REPORT INFORMATION
  Report Type: 
  Country: None (occurrence: None)
  Receive Date: 20100914
  Receipt Date: 20100217
  Transmission Date: 20110219
  Serious: No
  Sender: FDA-Public Use
  Company Number: US-PFIZER INC-2009308063

PATIENT
  Sex: Female

DRUGS (9)
  1. LYRICA [Suspect]
     Indication: PAIN
     Dosage: 75 MG, 2X/DAY
     Dates: start: 20091113
  2. NORVASC [Concomitant]
     Indication: HYPERTENSION
     Dosage: 2.5 MG, UNK
  3. HYZAAR [Concomitant]
     Indication: HYPERTENSION
     Dosage: [LOSARTAN 100MG]/[HYDROCHLOROTHIAZIDE 25MG]
  4. PRILOSEC [Concomitant]
     Indication: REFLUX OESOPHAGITIS
     Dosage: UNK
  5. LUMIGAN [Concomitant]
     Indication: GLAUCOMA
     Dosage: UNK
  6. TIMOPTIC [Concomitant]
     Indication: GLAUCOMA
     Dosage: UNK
  7. DIPHENHYDRAMINE [Concomitant]
     Indication: SLEEP DISORDER
     Dates: end: 20091101
  8. VITAMIN D [Concomitant]
     Dosage: UNK
  9. LOVAZA [Concomitant]
     Dosage: UNK

REACTIONS (3)
  - JOINT SWELLING [None]
  - PAIN [None]
  - SKIN LESION [None]
